FAERS Safety Report 24948827 (Version 2)
Quarter: 2025Q1

REPORT INFORMATION
  Report Type: Report from Study
  Country: US (occurrence: US)
  Receive Date: 20250210
  Receipt Date: 20250217
  Transmission Date: 20250408
  Serious: Yes (Other)
  Sender: NOVARTIS
  Company Number: US-002147023-NVSC2025US021525

PATIENT
  Sex: Female

DRUGS (1)
  1. GILENYA [Suspect]
     Active Substance: FINGOLIMOD HYDROCHLORIDE
     Indication: Product used for unknown indication
     Route: 065

REACTIONS (16)
  - Renal injury [Unknown]
  - Multiple sclerosis relapse [Unknown]
  - Autoimmune thyroiditis [Unknown]
  - Postmenopausal haemorrhage [Unknown]
  - Lethargy [Unknown]
  - Pancreatic cyst [Unknown]
  - Fatigue [Unknown]
  - Eye disorder [Unknown]
  - Diarrhoea [Unknown]
  - Glomerular filtration rate abnormal [Unknown]
  - Central nervous system lesion [Unknown]
  - Paraesthesia [Unknown]
  - Burning sensation [Unknown]
  - Rash [Unknown]
  - Weight increased [Unknown]
  - Alopecia [Unknown]
